FAERS Safety Report 6403822-0 (Version None)
Quarter: 2009Q4

REPORT INFORMATION
  Report Type: 
  Country: None (occurrence: None)
  Receive Date: 20091016
  Receipt Date: 20091007
  Transmission Date: 20100525
  Serious: Yes (Other)
  Sender: FDA-Public Use
  Company Number: US-BAYER-200934315NA

PATIENT
  Age: 25 Year
  Sex: Female

DRUGS (1)
  1. MIRENA [Suspect]
     Indication: CONTRACEPTION
     Route: 015
     Dates: start: 20090912

REACTIONS (7)
  - ABDOMINAL PAIN LOWER [None]
  - CRYING [None]
  - DIZZINESS [None]
  - PELVIC INFLAMMATORY DISEASE [None]
  - PROCEDURAL PAIN [None]
  - VAGINAL DISCHARGE [None]
  - VAGINITIS BACTERIAL [None]
